FAERS Safety Report 25119650 (Version 1)
Quarter: 2025Q1

REPORT INFORMATION
  Report Type: Report from Study
  Country: CH (occurrence: CH)
  Receive Date: 20250325
  Receipt Date: 20250325
  Transmission Date: 20250409
  Serious: Yes (Hospitalization)
  Sender: SANDOZ
  Company Number: CH-SANDOZ-SDZ2025CH017772

PATIENT
  Sex: Male

DRUGS (1)
  1. OMNITROPE [Suspect]
     Active Substance: SOMATROPIN
     Indication: Growth retardation
     Dosage: 0.35 MG, QD
     Route: 058
     Dates: start: 20240806

REACTIONS (2)
  - Tonsillectomy [Unknown]
  - Adenoidectomy [Unknown]

NARRATIVE: CASE EVENT DATE: 20250313
